FAERS Safety Report 21346582 (Version 1)
Quarter: 2022Q3

REPORT INFORMATION
  Report Type: Spontaneous
  Country: CN (occurrence: CN)
  Receive Date: 20220917
  Receipt Date: 20220917
  Transmission Date: 20221027
  Serious: Yes (Life-Threatening, Hospitalization, Other)
  Sender: FDA-Public Use
  Company Number: CN-MLMSERVICE-20220330-3463567-1

PATIENT
  Age: 29 Year
  Sex: Male

DRUGS (9)
  1. ANTI-THYMOCYTE GLOBULIN (RABBIT) NOS [Suspect]
     Active Substance: LAPINE T-LYMPHOCYTE IMMUNE GLOBULIN
     Indication: Bone marrow conditioning regimen
     Dosage: UNK
     Dates: start: 201912, end: 2019
  2. CYCLOPHOSPHAMIDE [Suspect]
     Active Substance: CYCLOPHOSPHAMIDE
     Indication: Bone marrow conditioning regimen
     Dosage: UNK
     Route: 042
     Dates: start: 201912, end: 2019
  3. PREDNISONE [Suspect]
     Active Substance: PREDNISONE
     Indication: Prophylaxis against graft versus host disease
     Dosage: UNK
     Route: 048
     Dates: start: 202001
  4. CYCLOSPORINE [Concomitant]
     Active Substance: CYCLOSPORINE
     Indication: Prophylaxis against graft versus host disease
     Dosage: UNK
     Dates: start: 2020
  5. BUSULFAN [Concomitant]
     Active Substance: BUSULFAN
     Indication: Bone marrow conditioning regimen
     Dosage: UNK
     Dates: start: 201912, end: 2019
  6. CYTARABINE [Concomitant]
     Active Substance: CYTARABINE
     Indication: Bone marrow conditioning regimen
     Dosage: UNK
     Dates: start: 201912, end: 2019
  7. SEMUSTINE [Concomitant]
     Active Substance: SEMUSTINE
     Indication: Bone marrow conditioning regimen
     Dosage: UNK
     Dates: start: 201912, end: 2019
  8. VORICONAZOLE [Concomitant]
     Active Substance: VORICONAZOLE
     Indication: Antifungal prophylaxis
     Dosage: UNK
     Dates: start: 2020
  9. SULFAMETHOXAZOLE [Concomitant]
     Active Substance: SULFAMETHOXAZOLE
     Indication: Antifungal prophylaxis
     Dosage: UNK
     Dates: start: 2020

REACTIONS (26)
  - Stomatitis [Recovered/Resolved]
  - Kaposi^s sarcoma [Recovered/Resolved]
  - Metastatic neoplasm [Recovered/Resolved]
  - Cachexia [Recovered/Resolved]
  - Epigastric discomfort [Recovered/Resolved]
  - Skin mass [Recovered/Resolved]
  - Pancytopenia [Recovered/Resolved]
  - Hypoproteinaemia [Recovered/Resolved]
  - Dysphagia [Recovered/Resolved]
  - Tachypnoea [Recovered/Resolved]
  - Tumour pain [Recovered/Resolved]
  - Cystitis haemorrhagic [Recovered/Resolved]
  - Haematuria [Recovered/Resolved]
  - Polyuria [Recovered/Resolved]
  - Sepsis [Recovered/Resolved]
  - Pneumonia [Recovered/Resolved]
  - Hypoxia [Recovered/Resolved]
  - Herpes zoster [Recovered/Resolved]
  - BK virus infection [Recovered/Resolved]
  - Human herpesvirus 8 infection [Recovered/Resolved]
  - Varicella zoster virus infection [Recovered/Resolved]
  - Epstein-Barr virus infection [Recovered/Resolved]
  - Pyrexia [Recovered/Resolved]
  - Cytomegalovirus infection [Recovered/Resolved]
  - Herpes simplex [Recovered/Resolved]
  - Off label use [Unknown]

NARRATIVE: CASE EVENT DATE: 20200101
